FAERS Safety Report 17263229 (Version 1)
Quarter: 2019Q4

REPORT INFORMATION
  Report Type: Spontaneous
  Country: US (occurrence: US)
  Receive Date: 20191219
  Receipt Date: 20191219
  Transmission Date: 20200122
  Serious: No
  Sender: FDA-Public Use
  Company Number: None

PATIENT
  Sex: Female

DRUGS (1)
  1. BOTOX [Suspect]
     Active Substance: ONABOTULINUMTOXINA
     Indication: MIGRAINE
     Dosage: 300 UNITS EVERY 12 WEEKS INTRAMUSCULAR
     Route: 030
     Dates: start: 201907

REACTIONS (3)
  - Neuralgia [None]
  - Hypersensitivity [None]
  - Blindness [None]
